FAERS Safety Report 7055605-9 (Version None)
Quarter: 2010Q4

REPORT INFORMATION
  Report Type: 
  Country: None (occurrence: None)
  Receive Date: 20101021
  Receipt Date: 20101013
  Transmission Date: 20110411
  Serious: Yes (Other)
  Sender: FDA-Public Use
  Company Number: US-PFIZER INC-2010110261

PATIENT
  Sex: Female
  Weight: 56.689 kg

DRUGS (3)
  1. SUTENT [Suspect]
     Indication: RENAL CELL CARCINOMA
     Dosage: 50 MG, 1X/DAY
     Route: 048
     Dates: start: 20100812, end: 20100908
  2. DILAUDID [Concomitant]
     Dosage: 2 MG, EVERY 3 HOURS
     Route: 048
     Dates: start: 20100803
  3. COLACE [Concomitant]
     Dosage: 100 MG, 1X/DAY
     Route: 048
     Dates: start: 20100803

REACTIONS (3)
  - BLOOD PRESSURE INCREASED [None]
  - HYPERTENSION [None]
  - YELLOW SKIN [None]
